FAERS Safety Report 6141699-1 (Version None)
Quarter: 2009Q1

REPORT INFORMATION
  Report Type: 
  Country: None (occurrence: None)
  Receive Date: 20090331
  Receipt Date: 20090331
  Transmission Date: 20090719
  Serious: Yes (Life-Threatening)
  Sender: FDA-Public Use
  Company Number: None

PATIENT
  Age: 43 Year
  Sex: Female
  Weight: 61.2356 kg

DRUGS (2)
  1. CYMBALTA [Suspect]
     Indication: ANXIETY
     Dosage: 30MG DAILY PO
     Route: 048
     Dates: start: 20090328, end: 20090331
  2. CYMBALTA [Suspect]
     Indication: PAIN
     Dosage: 30MG DAILY PO
     Route: 048
     Dates: start: 20090328, end: 20090331

REACTIONS (6)
  - ABDOMINAL PAIN [None]
  - CONVULSION [None]
  - DISTURBANCE IN ATTENTION [None]
  - DIZZINESS [None]
  - FATIGUE [None]
  - NAUSEA [None]
